FAERS Safety Report 5931093-8 (Version None)
Quarter: 2008Q4

REPORT INFORMATION
  Report Type: 
  Country: None (occurrence: None)
  Receive Date: 20081023
  Receipt Date: 20081012
  Transmission Date: 20090506
  Serious: Yes (Hospitalization)
  Sender: FDA-Public Use
  Company Number: 2008-03898

PATIENT
  Age: 54 Year
  Sex: Female
  Weight: 34 kg

DRUGS (1)
  1. VELCADE [Suspect]
     Indication: MULTIPLE MYELOMA
     Dosage: 1.3 MG/M2, INTRAVENOUS
     Route: 042
     Dates: start: 20070701, end: 20070901

REACTIONS (3)
  - APHASIA [None]
  - COMMUNICATION DISORDER [None]
  - ENCEPHALITIS HERPES [None]
